FAERS Safety Report 13528136 (Version 1)
Quarter: 2017Q2

REPORT INFORMATION
  Report Type: Spontaneous
  Country: US (occurrence: US)
  Receive Date: 20170509
  Receipt Date: 20170509
  Transmission Date: 20170830
  Serious: No
  Sender: FDA-Public Use
  Company Number: US-BAUSCH-BL-2017-008784

PATIENT
  Age: 32 Year
  Sex: Female
  Weight: 76.27 kg

DRUGS (1)
  1. RUCONEST [Suspect]
     Active Substance: HUMAN C1-ESTERASE INHIBITOR
     Indication: HEREDITARY ANGIOEDEMA
     Dosage: 23 CCS OVER 5 MINUTES
     Route: 042
     Dates: start: 20170403, end: 20170403

REACTIONS (2)
  - No adverse event [Unknown]
  - Exposure during pregnancy [Unknown]
